FAERS Safety Report 7392085-8 (Version None)
Quarter: 2011Q2

REPORT INFORMATION
  Report Type: 
  Country: None (occurrence: None)
  Receive Date: 20110404
  Receipt Date: 20110325
  Transmission Date: 20111010
  Serious: Yes (Hospitalization)
  Sender: FDA-Public Use
  Company Number: A0772855A

PATIENT
  Age: 66 Year
  Sex: Male
  Weight: 113.6 kg

DRUGS (6)
  1. AVODART [Concomitant]
  2. ENALAPRIL MALEATE [Concomitant]
     Dates: start: 19970101
  3. AVANDIA [Suspect]
     Indication: DIABETES MELLITUS
     Dosage: 4MG TWICE PER DAY
     Route: 048
     Dates: start: 19990721, end: 20071201
  4. METOPROLOL [Concomitant]
  5. AMLODIPINE BESYLATE [Concomitant]
  6. FLOMAX [Concomitant]

REACTIONS (3)
  - MYOCARDIAL INFARCTION [None]
  - CORONARY ARTERY DISEASE [None]
  - ARTERIOSCLEROSIS [None]
